FAERS Safety Report 6779606-0 (Version None)
Quarter: 2010Q2

REPORT INFORMATION
  Report Type: 
  Country: None (occurrence: None)
  Receive Date: 20100618
  Receipt Date: 20100608
  Transmission Date: 20101027
  Serious: Yes (Other)
  Sender: FDA-Public Use
  Company Number: A0865658A

PATIENT
  Age: 36 Year
  Sex: Female

DRUGS (5)
  1. LAMICTAL [Suspect]
     Indication: DRUG USE FOR UNKNOWN INDICATION
     Route: 065
  2. GEODON [Suspect]
     Dosage: 160MG PER DAY
     Route: 048
     Dates: start: 20080901, end: 20080929
  3. SYNTHROID [Concomitant]
     Indication: THYROID DISORDER
  4. LITHIUM [Concomitant]
  5. LEXAPRO [Concomitant]

REACTIONS (10)
  - ASTHENIA [None]
  - DRUG INTERACTION [None]
  - HALLUCINATION [None]
  - INSOMNIA [None]
  - LETHARGY [None]
  - LOSS OF CONSCIOUSNESS [None]
  - NIGHTMARE [None]
  - OVERDOSE [None]
  - SKIN DISCOLOURATION [None]
  - WHITE BLOOD CELL COUNT DECREASED [None]
